FAERS Safety Report 6385792-7 (Version None)
Quarter: 2009Q4

REPORT INFORMATION
  Report Type: 
  Country: None (occurrence: None)
  Receive Date: 20091002
  Receipt Date: 20090407
  Transmission Date: 20100525
  Serious: No
  Sender: FDA-Public Use
  Company Number: US-ASTRAZENECA-2008UW21612

PATIENT
  Age: 75 Year
  Sex: Female
  Weight: 70.8 kg

DRUGS (13)
  1. ARIMIDEX [Suspect]
     Indication: BREAST CANCER
     Route: 048
     Dates: start: 20080903, end: 20090301
  2. VESICARE [Concomitant]
  3. ALLEGRA D 24 HOUR [Concomitant]
  4. ACTONEL [Concomitant]
  5. LOVAZA [Concomitant]
  6. CENTRUM SILVER [Concomitant]
  7. DIOVAN [Concomitant]
     Indication: HYPERTENSION
  8. LASIX [Concomitant]
  9. POTASSIUM CHLORIDE [Concomitant]
  10. ADVAIR DISKUS 100/50 [Concomitant]
  11. LEVOTHROID [Concomitant]
  12. COQ10 [Concomitant]
  13. ALLERGY SHOTS [Concomitant]

REACTIONS (11)
  - ARTHRALGIA [None]
  - ASTHENIA [None]
  - BLOOD CHOLESTEROL INCREASED [None]
  - BLOOD PRESSURE INCREASED [None]
  - DECREASED APPETITE [None]
  - DIZZINESS [None]
  - DYSPNOEA [None]
  - FATIGUE [None]
  - HEADACHE [None]
  - RAYNAUD'S PHENOMENON [None]
  - WEIGHT INCREASED [None]
